FAERS Safety Report 16072260 (Version 1)
Quarter: 2019Q2

REPORT INFORMATION
  Report Type: Spontaneous
  Country: US (occurrence: US)
  Receive Date: 20190314
  Receipt Date: 20190314
  Transmission Date: 20190711
  Serious: Yes (Disabling, Other)
  Sender: FDA-Public Use
  Company Number: None

PATIENT
  Age: 43 Year
  Sex: Male
  Weight: 93.15 kg

DRUGS (2)
  1. CIPRO [Suspect]
     Active Substance: CIPROFLOXACIN HYDROCHLORIDE
     Indication: PROSTATITIS
     Route: 048
     Dates: start: 20190201, end: 20190211
  2. BI-PAP FOR SLEEP APNEA [Suspect]
     Active Substance: DEVICE

REACTIONS (9)
  - Panic attack [None]
  - Hypertension [None]
  - Discomfort [None]
  - Dyspnoea [None]
  - Paraesthesia [None]
  - Feeling of body temperature change [None]
  - Vision blurred [None]
  - Heart rate increased [None]
  - Chills [None]

NARRATIVE: CASE EVENT DATE: 20190211
